FAERS Safety Report 22125111 (Version 4)
Quarter: 2025Q2

REPORT INFORMATION
  Report Type: Spontaneous
  Country: US (occurrence: US)
  Receive Date: 20230322
  Receipt Date: 20250510
  Transmission Date: 20250717
  Serious: No
  Sender: SANOFI AVENTIS
  Company Number: US-SA-SAC20230320000226

PATIENT
  Sex: Female

DRUGS (21)
  1. DUPIXENT [Suspect]
     Active Substance: DUPILUMAB
     Indication: Psoriasis
     Dosage: 300 MG, QOW
     Route: 058
     Dates: start: 20230323
  2. DUPIXENT [Suspect]
     Active Substance: DUPILUMAB
     Indication: Dermatitis atopic
  3. DUPIXENT [Suspect]
     Active Substance: DUPILUMAB
     Indication: Psoriasis
  4. ACETIC ACID [Concomitant]
     Active Substance: ACETIC ACID
  5. ATORVASTATIN [Concomitant]
     Active Substance: ATORVASTATIN
  6. CLOBETASOL [Concomitant]
     Active Substance: CLOBETASOL
  7. DESONIDE [Concomitant]
     Active Substance: DESONIDE
  8. FLUOCINONIDE [Concomitant]
     Active Substance: FLUOCINONIDE
  9. FORTAMET [Concomitant]
     Active Substance: METFORMIN HYDROCHLORIDE
  10. GABAPENTIN [Concomitant]
     Active Substance: GABAPENTIN
  11. LANTUS SOLOSTAR [Concomitant]
     Active Substance: INSULIN GLARGINE
  12. LOSARTAN POTASSIUM [Concomitant]
     Active Substance: LOSARTAN POTASSIUM
  13. OTEZLA [Concomitant]
     Active Substance: APREMILAST
  14. OZEMPIC [Concomitant]
     Active Substance: SEMAGLUTIDE
  15. PHENTERMINE [Concomitant]
     Active Substance: PHENTERMINE
  16. TACROLIMUS [Concomitant]
     Active Substance: TACROLIMUS
  17. TOPIRAMATE [Concomitant]
     Active Substance: TOPIRAMATE
  18. XIGDUO XR [Concomitant]
     Active Substance: DAPAGLIFLOZIN PROPANEDIOL\METFORMIN HYDROCHLORIDE
  19. TRIAMCINOLONE [Concomitant]
     Active Substance: TRIAMCINOLONE
  20. CHLORTHALIDONE [Concomitant]
     Active Substance: CHLORTHALIDONE
  21. HYDROCORTISONE [Concomitant]
     Active Substance: HYDROCORTISONE

REACTIONS (6)
  - Sleep disorder due to a general medical condition [Unknown]
  - Psoriasis [Unknown]
  - Dermatitis atopic [Unknown]
  - Rash [Not Recovered/Not Resolved]
  - Skin discomfort [Not Recovered/Not Resolved]
  - Drug ineffective for unapproved indication [Unknown]
